FAERS Safety Report 6548046-1 (Version None)
Quarter: 2010Q1

REPORT INFORMATION
  Report Type: 
  Country: None (occurrence: None)
  Receive Date: 20100124
  Receipt Date: 20091218
  Transmission Date: 20100710
  Serious: No
  Sender: FDA-Public Use
  Company Number: US-ALEXION-A200901098

PATIENT
  Sex: Female

DRUGS (1)
  1. SOLIRIS [Suspect]
     Dosage: UNK

REACTIONS (4)
  - ANIMAL BITE [None]
  - CONDITION AGGRAVATED [None]
  - HAEMOGLOBIN DECREASED [None]
  - SKIN DISCOLOURATION [None]
